FAERS Safety Report 5375785-0 (Version None)
Quarter: 2007Q2

REPORT INFORMATION
  Report Type: 
  Country: None (occurrence: None)
  Receive Date: 20070629
  Receipt Date: 20070622
  Transmission Date: 20071010
  Serious: Yes (Death, Hospitalization, Congenital Anomaly, Other)
  Sender: FDA-Public Use
  Company Number: FR-ABBOTT-04P-056-0249747-00

PATIENT
  Sex: Male
  Weight: 2.3 kg

DRUGS (6)
  1. KALETRA [Suspect]
     Indication: DRUG EXPOSURE DURING PREGNANCY
  2. BROMAZEPAM [Suspect]
     Indication: DRUG EXPOSURE DURING PREGNANCY
  3. LAMIVUDINE + ZIDOVUDINE [Suspect]
     Indication: DRUG EXPOSURE DURING PREGNANCY
  4. ZOLPIDEM TARTRATE [Suspect]
     Indication: DRUG EXPOSURE DURING PREGNANCY
  5. ZIDOVUDINE [Suspect]
     Indication: HIV INFECTION
     Dates: start: 20040107, end: 20040113
  6. BUPRENORPHINE HCL [Suspect]
     Indication: DRUG EXPOSURE DURING PREGNANCY

REACTIONS (14)
  - ACUTE PULMONARY OEDEMA [None]
  - ATRIAL SEPTAL DEFECT [None]
  - CARDIAC FAILURE [None]
  - COAGULATION TEST ABNORMAL [None]
  - FOETAL DISTRESS SYNDROME [None]
  - HYPOGLYCAEMIA [None]
  - HYPONATRAEMIA [None]
  - LACTIC ACIDOSIS [None]
  - RENAL FAILURE [None]
  - THROMBOCYTOPENIA [None]
  - TRISOMY 21 [None]
  - ULTRASOUND KIDNEY ABNORMAL [None]
  - VENA CAVA THROMBOSIS [None]
  - VENTRICULAR SEPTAL DEFECT [None]
